FAERS Safety Report 5097614-5 (Version None)
Quarter: 2006Q3

REPORT INFORMATION
  Report Type: 
  Country: None (occurrence: None)
  Receive Date: 20060901
  Receipt Date: 20060821
  Transmission Date: 20061208
  Serious: Yes (Other)
  Sender: FDA-Public Use
  Company Number: 2006101849

PATIENT
  Sex: Male
  Weight: 138.3471 kg

DRUGS (1)
  1. ZITHROMAX [Suspect]
     Indication: BRONCHITIS
     Dosage: 500 MG (500 MG, 1 IN 1 D)
     Dates: start: 20060811

REACTIONS (6)
  - CARDIAC FLUTTER [None]
  - DRY EYE [None]
  - EYE INFLAMMATION [None]
  - EYE PRURITUS [None]
  - PALPITATIONS [None]
  - VISION BLURRED [None]
